FAERS Safety Report 18614057 (Version 1)
Quarter: 2020Q4

REPORT INFORMATION
  Report Type: Spontaneous
  Country: US (occurrence: US)
  Receive Date: 20201214
  Receipt Date: 20201214
  Transmission Date: 20210114
  Serious: No
  Sender: FDA-Public Use
  Company Number: US-ELI_LILLY_AND_COMPANY-US202012004287

PATIENT
  Age: 25 Year
  Sex: Female
  Weight: 55.78 kg

DRUGS (4)
  1. REMODULIN [Suspect]
     Active Substance: TREPROSTINIL
     Indication: PULMONARY ARTERIAL HYPERTENSION
     Dosage: 6 NG/KG/MIN, CONTINOUS
     Route: 042
     Dates: start: 20201125
  2. REMODULIN [Suspect]
     Active Substance: TREPROSTINIL
     Dosage: 9 NG/KG/MIN, CONTINOUS
     Route: 042
  3. TADALAFIL. [Suspect]
     Active Substance: TADALAFIL
     Dosage: 20 MG, DAILY
     Route: 065
  4. TADALAFIL. [Suspect]
     Active Substance: TADALAFIL
     Indication: PULMONARY ARTERIAL HYPERTENSION
     Dosage: 40 MG, DAILY
     Route: 065
     Dates: start: 20201204

REACTIONS (6)
  - Dizziness [Unknown]
  - Vomiting [Recovered/Resolved]
  - Cyanosis [Unknown]
  - Vision blurred [Unknown]
  - Hypoacusis [Unknown]
  - Nausea [Recovered/Resolved]

NARRATIVE: CASE EVENT DATE: 20201204
